FAERS Safety Report 16457984 (Version 1)
Quarter: 2019Q2

REPORT INFORMATION
  Report Type: Spontaneous
  Country: GB (occurrence: GB)
  Receive Date: 20190620
  Receipt Date: 20190620
  Transmission Date: 20190711
  Serious: Yes (Life-Threatening, Disabling, Other)
  Sender: FDA-Public Use
  Company Number: GB-MYLANLABS-2019M1056852

PATIENT
  Age: 18 Year
  Sex: Male
  Weight: 70 kg

DRUGS (6)
  1. SIMETHICONE (DIMETHICONE) [Concomitant]
     Active Substance: DIMETHICONE
     Dosage: UNK
  2. ALVERINE CITRATE [Concomitant]
     Active Substance: ALVERINE CITRATE
     Dosage: UNK
  3. IBUPROFEN. [Concomitant]
     Active Substance: IBUPROFEN
     Dosage: UNK
  4. SERTRALINE [Suspect]
     Active Substance: SERTRALINE HYDROCHLORIDE
     Indication: DEPRESSION
     Dosage: 50 MILLIGRAM
     Route: 048
     Dates: start: 20171113, end: 20171115
  5. ANADIN PARACETAMOL [Concomitant]
     Active Substance: ACETAMINOPHEN
     Dosage: UNK
  6. LAXIDO [Concomitant]
     Active Substance: POLYETHYLENE GLYCOL 3350\POTASSIUM CHLORIDE\SODIUM BICARBONATE\SODIUM CHLORIDE

REACTIONS (14)
  - Anxiety [Recovering/Resolving]
  - Hallucination, visual [Recovered/Resolved]
  - Suicidal ideation [Recovered/Resolved with Sequelae]
  - Agitation [Recovered/Resolved]
  - Tremor [Recovered/Resolved with Sequelae]
  - Restlessness [Recovered/Resolved]
  - Urinary incontinence [Recovering/Resolving]
  - Muscle spasms [Recovering/Resolving]
  - Insomnia [Recovered/Resolved with Sequelae]
  - Akathisia [Unknown]
  - Decreased appetite [Recovered/Resolved]
  - Paranoia [Recovered/Resolved]
  - Confusional state [Recovered/Resolved]
  - Hyperhidrosis [Recovered/Resolved]

NARRATIVE: CASE EVENT DATE: 20171113
